FAERS Safety Report 17941891 (Version 1)
Quarter: 2020Q2

REPORT INFORMATION
  Report Type: Spontaneous
  Country: US (occurrence: US)
  Receive Date: 20200625
  Receipt Date: 20200625
  Transmission Date: 20200714
  Serious: No
  Sender: FDA-Public Use
  Company Number: US-SA-2020SA161752

PATIENT

DRUGS (8)
  1. DUPIXENT [Suspect]
     Active Substance: DUPILUMAB
     Indication: BRONCHITIS
     Dosage: 300 MG, QOW
     Route: 058
     Dates: start: 202004
  2. DILTIAZEM. [Concomitant]
     Active Substance: DILTIAZEM
     Dosage: UNK UNK, Q12H
  3. FISH OIL [Concomitant]
     Active Substance: FISH OIL
  4. OLMESARTAN/AMLODIPIN HEXAL [Concomitant]
  5. REPATHA [Concomitant]
     Active Substance: EVOLOCUMAB
  6. PREDNISONE. [Concomitant]
     Active Substance: PREDNISONE
  7. SYMBICORT [Concomitant]
     Active Substance: BUDESONIDE\FORMOTEROL FUMARATE DIHYDRATE
  8. VITAMIN D3 [Concomitant]
     Active Substance: CHOLECALCIFEROL

REACTIONS (4)
  - Product use in unapproved indication [Unknown]
  - Musculoskeletal pain [Unknown]
  - Skin discolouration [Unknown]
  - Peripheral swelling [Unknown]
